FAERS Safety Report 6580149-8 (Version None)
Quarter: 2010Q1

REPORT INFORMATION
  Report Type: 
  Country: None (occurrence: None)
  Receive Date: 20100203
  Receipt Date: 20100125
  Transmission Date: 20100710
  Serious: Yes (Hospitalization)
  Sender: FDA-Public Use
  Company Number: 487437

PATIENT
  Age: 55 Year
  Sex: Female
  Weight: 116 kg

DRUGS (5)
  1. VANCOMYCIN HCL [Suspect]
     Indication: DRUG USE FOR UNKNOWN INDICATION
     Dosage: 1 GRAM, EVERY 12 HOURS, INTRAVENOUS
     Route: 042
  2. (METHADONE) [Concomitant]
  3. QUETIAPINE [Concomitant]
  4. SERTRALINE HCL [Concomitant]
  5. (TRAMACET /01625001/) [Concomitant]

REACTIONS (8)
  - DRUG HYPERSENSITIVITY [None]
  - ERYTHEMA [None]
  - OEDEMA PERIPHERAL [None]
  - PARAESTHESIA [None]
  - PRURITUS [None]
  - PSORIASIS [None]
  - SKIN EXFOLIATION [None]
  - SKIN PLAQUE [None]
